FAERS Safety Report 15598067 (Version 1)
Quarter: 2018Q4

REPORT INFORMATION
  Report Type: Spontaneous
  Country: US (occurrence: US)
  Receive Date: 20181108
  Receipt Date: 20181108
  Transmission Date: 20190205
  Serious: No
  Sender: FDA-Public Use
  Company Number: US-PFIZER INC-2018456674

PATIENT
  Age: 63 Year
  Sex: Male

DRUGS (3)
  1. PNEUMOCOCCAL VACCINE POLYVALENT NOS [Concomitant]
     Active Substance: PNEUMOCOCCAL VACCINE POLYVALENT
     Indication: IMMUNISATION
     Dosage: UNK
  2. INFLUENZA VACCINE [Concomitant]
     Active Substance: INFLUENZA VIRUS VACCINE
     Indication: IMMUNISATION
     Dosage: UNK
  3. XELJANZ XR [Suspect]
     Active Substance: TOFACITINIB CITRATE
     Indication: PALINDROMIC RHEUMATISM
     Dosage: 11 MG, 1X/DAY
     Dates: start: 201608

REACTIONS (3)
  - Condition aggravated [Unknown]
  - Product use in unapproved indication [Unknown]
  - Weight decreased [Unknown]

NARRATIVE: CASE EVENT DATE: 201608
